FAERS Safety Report 13936900 (Version 1)
Quarter: 2017Q3

REPORT INFORMATION
  Report Type: Spontaneous
  Country: US (occurrence: US)
  Receive Date: 20170905
  Receipt Date: 20170905
  Transmission Date: 20171127
  Serious: Yes (Other)
  Sender: FDA-Public Use
  Company Number: US-BAUSCH-BL-2017-026285

PATIENT
  Age: 7 Decade
  Sex: Male

DRUGS (1)
  1. FLUOROURACIL. [Suspect]
     Active Substance: FLUOROURACIL
     Indication: ACTINIC KERATOSIS
     Dosage: MORNING AFTER SHOWERING AND ONTO DRY SKIN EACH EVENING
     Route: 061

REACTIONS (1)
  - Cerebellar syndrome [Recovered/Resolved]
